FAERS Safety Report 22211720 (Version 1)
Quarter: 2023Q2

REPORT INFORMATION
  Report Type: Spontaneous
  Country: US (occurrence: US)
  Receive Date: 20230414
  Receipt Date: 20230414
  Transmission Date: 20230722
  Serious: No
  Sender: FDA-Public Use
  Company Number: US-VER-202200203

PATIENT
  Sex: Male

DRUGS (1)
  1. TRIPTORELIN PAMOATE [Suspect]
     Active Substance: TRIPTORELIN PAMOATE
     Indication: Product used for unknown indication
     Route: 065

REACTIONS (6)
  - Dizziness [Unknown]
  - Headache [Unknown]
  - Hot flush [Unknown]
  - Muscle spasms [Unknown]
  - Pain in extremity [Unknown]
  - Neuropathy peripheral [Unknown]
